FAERS Safety Report 5758035-2 (Version None)
Quarter: 2008Q2

REPORT INFORMATION
  Report Type: 
  Country: None (occurrence: None)
  Receive Date: 20080507
  Receipt Date: 20080215
  Transmission Date: 20081010
  Serious: Yes (Hospitalization)
  Sender: FDA-Public Use
  Company Number: 231616J08USA

PATIENT
  Age: 54 Year
  Sex: Female
  Weight: 52.1637 kg

DRUGS (5)
  1. REBIF [Suspect]
     Indication: MULTIPLE SCLEROSIS
     Dates: start: 20070101, end: 20080101
  2. PROVIGIL [Concomitant]
  3. BACLOFEN [Concomitant]
  4. FEROZA (ALL OTHER THERAPEUTIC PRODUCTS) [Concomitant]
  5. FLORATEEN (ALL OTHER THERAPEUTIC PRODUCTS) [Concomitant]

REACTIONS (4)
  - FACIAL PALSY [None]
  - HYPOAESTHESIA [None]
  - MULTIPLE SCLEROSIS RELAPSE [None]
  - NERVOUS SYSTEM DISORDER [None]
